FAERS Safety Report 7388427-X (Version None)
Quarter: 2011Q2

REPORT INFORMATION
  Report Type: 
  Country: None (occurrence: None)
  Receive Date: 20110401
  Receipt Date: 20110318
  Transmission Date: 20111010
  Serious: Yes (Other)
  Sender: FDA-Public Use
  Company Number: CA-JNJFOC-20110309034

PATIENT
  Sex: Female
  Weight: 67.5 kg

DRUGS (3)
  1. REMICADE [Suspect]
     Indication: JUVENILE ARTHRITIS
     Dosage: LOADING DOSES
     Route: 042
  2. MS CONTIN [Concomitant]
  3. ARTHROTEC [Concomitant]

REACTIONS (7)
  - FALL [None]
  - INFLUENZA [None]
  - NECK PAIN [None]
  - DIZZINESS [None]
  - HEADACHE [None]
  - PRODUCTIVE COUGH [None]
  - NAUSEA [None]
